FAERS Safety Report 5722110-9 (Version None)
Quarter: 2008Q2

REPORT INFORMATION
  Report Type: 
  Country: None (occurrence: None)
  Receive Date: 20080429
  Receipt Date: 20080421
  Transmission Date: 20081010
  Serious: Yes (Hospitalization)
  Sender: FDA-Public Use
  Company Number: US-ELI_LILLY_AND_COMPANY-US200804005526

PATIENT
  Sex: Male

DRUGS (4)
  1. BYETTA [Suspect]
     Indication: TYPE 2 DIABETES MELLITUS
     Dosage: 5 UG, 2/D
     Route: 058
     Dates: start: 20060101, end: 20060101
  2. BYETTA [Suspect]
     Dosage: 10 UG, 2/D
     Route: 058
     Dates: start: 20060101, end: 20080309
  3. COREG [Concomitant]
     Indication: HEART RATE INCREASED
  4. INSULIN [Concomitant]
     Dates: start: 20080310

REACTIONS (3)
  - CORONARY ARTERY STENOSIS [None]
  - DEHYDRATION [None]
  - INFLUENZA [None]
